FAERS Safety Report 7377481-7 (Version None)
Quarter: 2011Q1

REPORT INFORMATION
  Report Type: 
  Country: None (occurrence: None)
  Receive Date: 20110328
  Receipt Date: 20110314
  Transmission Date: 20110831
  Serious: Yes (Hospitalization)
  Sender: FDA-Public Use
  Company Number: PHHY2011FR21857

PATIENT
  Sex: Male

DRUGS (5)
  1. RIVOTRIL [Concomitant]
     Indication: EPILEPSY
     Dosage: 2 DRP, BID
     Dates: start: 20101201
  2. DANTRIUM [Concomitant]
     Indication: MUSCLE SPASTICITY
     Dosage: 1 DF, QD
  3. TEGRETOL [Suspect]
     Dosage: 400 MG, BID
  4. DEPAKENE [Concomitant]
     Indication: EPILEPSY
     Dosage: 700 MG, TID
  5. DIFFU K [Concomitant]
     Indication: HYPOKALAEMIA
     Dosage: 1 DF, BID

REACTIONS (6)
  - ALTERED STATE OF CONSCIOUSNESS [None]
  - ANTICONVULSANT DRUG LEVEL INCREASED [None]
  - HEMIPLEGIA [None]
  - COGNITIVE DISORDER [None]
  - DISTURBANCE IN ATTENTION [None]
  - SOMNOLENCE [None]
